FAERS Safety Report 8049414-1 (Version None)
Quarter: 2012Q1

REPORT INFORMATION
  Report Type: 
  Country: None (occurrence: None)
  Receive Date: 20120117
  Receipt Date: 20120113
  Transmission Date: 20120608
  Serious: Yes (Hospitalization)
  Sender: FDA-Public Use
  Company Number: PE-ROCHE-1030258

PATIENT
  Sex: Female

DRUGS (3)
  1. HERCEPTIN [Suspect]
     Indication: BREAST CANCER
     Route: 042
     Dates: start: 20101001
  2. PAMIDRON [Concomitant]
  3. GEMZAR [Concomitant]
     Indication: BREAST CANCER

REACTIONS (3)
  - ASTHENIA [None]
  - BACK PAIN [None]
  - URINARY TRACT OBSTRUCTION [None]
